FAERS Safety Report 8863083 (Version 1)
Quarter: 2012Q4

REPORT INFORMATION
  Report Type: 
  Country: JP (occurrence: JP)
  Receive Date: 20121026
  Receipt Date: 20121026
  Transmission Date: 20130627
  Serious: Yes (Death, Hospitalization)
  Sender: FDA-Public Use
  Company Number: JP-NOVOPROD-362281

PATIENT
  Sex: Male
  Weight: 103 kg

DRUGS (1)
  1. NOVOSEVEN HI [Suspect]
     Indication: HAEMORRHAGE
     Dosage: UNKNOWN
     Route: 042

REACTIONS (1)
  - Pulmonary embolism [Fatal]
